FAERS Safety Report 23328684 (Version 3)
Quarter: 2024Q1

REPORT INFORMATION
  Report Type: Report from Study
  Country: US (occurrence: US)
  Receive Date: 20231221
  Receipt Date: 20240206
  Transmission Date: 20240410
  Serious: No
  Sender: FDA-Public Use
  Company Number: US-ALXN-A202216043

PATIENT
  Age: 8 Year
  Sex: Male

DRUGS (5)
  1. STRENSIQ [Suspect]
     Active Substance: ASFOTASE ALFA
     Indication: Hypophosphatasia
     Dosage: 60 MG, TIW
     Route: 065
     Dates: start: 20221220
  2. STRENSIQ [Suspect]
     Active Substance: ASFOTASE ALFA
     Dosage: 30 MG, TIW
     Route: 065
  3. STRENSIQ [Suspect]
     Active Substance: ASFOTASE ALFA
     Dosage: 40 MG, UNK
     Route: 065
  4. STRENSIQ [Suspect]
     Active Substance: ASFOTASE ALFA
     Dosage: 50 MG, UNK
     Route: 065
  5. STRENSIQ [Suspect]
     Active Substance: ASFOTASE ALFA
     Dosage: UNK, THREE TIMES A WEEK
     Route: 065

REACTIONS (24)
  - Urticaria [Unknown]
  - Rash [Unknown]
  - Hypoaesthesia [Unknown]
  - Pain in extremity [Recovered/Resolved]
  - Drug intolerance [Unknown]
  - Myalgia [Unknown]
  - Fear of injection [Unknown]
  - Dermatitis contact [Unknown]
  - Arthralgia [Unknown]
  - Injection site inflammation [Not Recovered/Not Resolved]
  - Injection site warmth [Unknown]
  - Injection site pain [Recovered/Resolved]
  - Injection site erythema [Unknown]
  - Injection site pruritus [Unknown]
  - Injection site urticaria [Recovered/Resolved]
  - Injection site reaction [Unknown]
  - Injection site swelling [Unknown]
  - Injection site rash [Recovering/Resolving]
  - Injection site bruising [Unknown]
  - Injection site haemorrhage [Recovered/Resolved]
  - Back pain [Unknown]
  - Asthenia [Unknown]
  - Fatigue [Unknown]
  - Pain [Unknown]

NARRATIVE: CASE EVENT DATE: 20221201
